FAERS Safety Report 23040594 (Version 1)
Quarter: 2023Q4

REPORT INFORMATION
  Report Type: Spontaneous
  Country: GB (occurrence: GB)
  Receive Date: 20231006
  Receipt Date: 20231006
  Transmission Date: 20240110
  Serious: Yes (Life-Threatening, Hospitalization, Other)
  Sender: FDA-Public Use
  Company Number: GB-MHRA-MED-202309261856322600-BVZWN

PATIENT
  Age: 91 Year
  Sex: Female
  Weight: 71 kg

DRUGS (1)
  1. DICLOFENAC [Suspect]
     Active Substance: DICLOFENAC
     Indication: Pain
     Dosage: 150 MILLIGRAM DAILY; 50MG THREE TIMES A DAY IF NEEDED; DURATION : 2 YEARS
     Route: 065
     Dates: start: 2021, end: 20230923

REACTIONS (1)
  - Gastric ulcer perforation [Recovered/Resolved]

NARRATIVE: CASE EVENT DATE: 20230923
